FAERS Safety Report 4823346-1 (Version None)
Quarter: 2005Q4

REPORT INFORMATION
  Report Type: 
  Country: None (occurrence: None)
  Receive Date: 20051107
  Receipt Date: 20051026
  Transmission Date: 20060501
  Serious: Yes (Hospitalization)
  Sender: FDA-Public Use
  Company Number: GXKR2005HR01876

PATIENT
  Age: 3 Year
  Sex: Female

DRUGS (5)
  1. CEFTRIAXONE [Suspect]
     Indication: ACUTE TONSILLITIS
     Dosage: 1G, QD, INTRAVENOUS
     Route: 042
     Dates: start: 20050927, end: 20051004
  2. PENICILLIN G [Suspect]
     Indication: ACUTE TONSILLITIS
     Dates: start: 20050927, end: 20051004
  3. CEDAX [Suspect]
     Indication: ACUTE TONSILLITIS
     Dosage: 1 TSP, QD, ORAL
     Route: 048
     Dates: start: 20051004, end: 20051013
  4. PENICILLIN V [Suspect]
     Indication: ACUTE TONSILLITIS
     Dates: start: 20051004, end: 20051013
  5. SUMAMED (AZITHROMYCIN) [Concomitant]

REACTIONS (4)
  - EYE DISORDER [None]
  - FATIGUE [None]
  - HEMIPARESIS [None]
  - STATUS EPILEPTICUS [None]
